FAERS Safety Report 10244675 (Version 1)
Quarter: 2014Q2

REPORT INFORMATION
  Report Type: Spontaneous
  Country: DE (occurrence: CR)
  Receive Date: 20140618
  Receipt Date: 20140618
  Transmission Date: 20141212
  Serious: Yes (Death)
  Sender: FDA-Public Use
  Company Number: DE-ACTELION-A-NJ2014-100278

PATIENT
  Sex: 0

DRUGS (1)
  1. VENTAVIS BAYER SCHERING [Suspect]
     Indication: PULMONARY HYPERTENSION
     Route: 055

REACTIONS (1)
  - Cardiac arrest [Fatal]
